FAERS Safety Report 23123478 (Version 1)
Quarter: 2023Q4

REPORT INFORMATION
  Report Type: Spontaneous
  Country: US (occurrence: US)
  Receive Date: 20231030
  Receipt Date: 20231030
  Transmission Date: 20240109
  Serious: Yes (Other)
  Sender: FDA-Public Use
  Company Number: US-AMGEN-USASP2023189508

PATIENT
  Sex: Female

DRUGS (4)
  1. PROCRIT [Suspect]
     Active Substance: ERYTHROPOIETIN
     Indication: Product used for unknown indication
     Dosage: QWK
     Route: 065
  2. UPTRAVI [Suspect]
     Active Substance: SELEXIPAG
     Indication: Pulmonary hypertension
     Dosage: 1200 MICROGRAM, BID
     Route: 048
     Dates: start: 202107
  3. SILDENAFIL [Concomitant]
     Active Substance: SILDENAFIL
  4. ADEMPAS [Concomitant]
     Active Substance: RIOCIGUAT

REACTIONS (6)
  - Transfusion [Unknown]
  - Myalgia [Unknown]
  - Fall [Recovered/Resolved]
  - Dyspnoea exertional [Recovering/Resolving]
  - Dizziness [Unknown]
  - Muscle spasms [Unknown]
